FAERS Safety Report 20614799 (Version 2)
Quarter: 2024Q4

REPORT INFORMATION
  Report Type: Spontaneous
  Country: US (occurrence: US)
  Receive Date: 20220321
  Receipt Date: 20241110
  Transmission Date: 20250114
  Serious: No
  Sender: SANOFI AVENTIS
  Company Number: US-SA-SAC20220314000573

PATIENT
  Age: 73 Year
  Sex: Male
  Weight: 112.97 kg

DRUGS (21)
  1. DUPIXENT [Suspect]
     Active Substance: DUPILUMAB
     Indication: Dermatitis atopic
     Dosage: 300 MG, QOW
     Route: 058
     Dates: start: 20220303
  2. GLIMEPIRIDE [Concomitant]
     Active Substance: GLIMEPIRIDE
  3. PREDNISONE [Concomitant]
     Active Substance: PREDNISONE
  4. HYDRALAZINE [Concomitant]
     Active Substance: HYDRALAZINE HYDROCHLORIDE
  5. MOUNJARO [Concomitant]
     Active Substance: TIRZEPATIDE
  6. HERBALS\TURMERIC [Concomitant]
     Active Substance: HERBALS\TURMERIC
  7. COENZYME Q10 [Concomitant]
     Active Substance: DIETARY SUPPLEMENT\UBIDECARENONE
  8. FUROSEMIDE [Concomitant]
     Active Substance: FUROSEMIDE
  9. FISH OIL [Concomitant]
     Active Substance: FISH OIL
  10. CARVEDILOL [Concomitant]
     Active Substance: CARVEDILOL
  11. ALLOPURINOL [Concomitant]
     Active Substance: ALLOPURINOL
  12. EPIPEN [Concomitant]
     Active Substance: EPINEPHRINE
  13. MAGNESIUM OXIDE [Concomitant]
     Active Substance: MAGNESIUM OXIDE
  14. VITAMIN C [Concomitant]
     Active Substance: ASCORBIC ACID
  15. HYDROXYCHLOROQUINE SULFATE [Concomitant]
     Active Substance: HYDROXYCHLOROQUINE SULFATE
  16. ASPIRIN [Concomitant]
     Active Substance: ASPIRIN
  17. METHOCARBAMOL [Concomitant]
     Active Substance: METHOCARBAMOL
  18. GABAPENTIN [Concomitant]
     Active Substance: GABAPENTIN
  19. ATORVASTATIN CALCIUM [Concomitant]
     Active Substance: ATORVASTATIN CALCIUM
  20. PROPRANOLOL/HCTZ [Concomitant]
  21. AMLODIPINE BESYLATE [Concomitant]
     Active Substance: AMLODIPINE BESYLATE

REACTIONS (6)
  - Dry skin [Unknown]
  - Myalgia [Unknown]
  - Arthralgia [Unknown]
  - Arthritis [Unknown]
  - Pruritus [Unknown]
  - Condition aggravated [Unknown]

NARRATIVE: CASE EVENT DATE: 20220101
